FAERS Safety Report 18351194 (Version 2)
Quarter: 2021Q3

REPORT INFORMATION
  Report Type: Spontaneous
  Country: US (occurrence: US)
  Receive Date: 20201007
  Receipt Date: 20210708
  Transmission Date: 20211014
  Serious: Yes (Other)
  Sender: FDA-Public Use
  Company Number: US-SA-2020SA273623

PATIENT
  Age: 67 Year
  Sex: Male

DRUGS (1)
  1. ZANTAC [Suspect]
     Active Substance: RANITIDINE HYDROCHLORIDE
     Indication: DYSPEPSIA
     Dosage: UNK UNK, QD
     Dates: start: 199001, end: 201901

REACTIONS (3)
  - Renal cancer stage IV [Unknown]
  - Bladder cancer [Unknown]
  - Gallbladder cancer stage IV [Unknown]

NARRATIVE: CASE EVENT DATE: 20200101
